FAERS Safety Report 20628287 (Version 1)
Quarter: 2022Q1

REPORT INFORMATION
  Report Type: Report from Study
  Country: TR (occurrence: None)
  Receive Date: 20220323
  Receipt Date: 20220323
  Transmission Date: 20220423
  Serious: Yes (Other)
  Sender: FDA-Public Use
  Company Number: TR-ADIENNEP-2022AD000232

PATIENT
  Age: 4 Year
  Sex: Male

DRUGS (10)
  1. THIOTEPA [Suspect]
     Active Substance: THIOTEPA
     Indication: Allogenic stem cell transplantation
     Dosage: 10 MG/KG/DAY FOR ONE DAY
  2. BUSULFAN [Suspect]
     Active Substance: BUSULFAN
     Indication: Allogenic stem cell transplantation
     Dosage: 85-95 MG/LXH AUC;0.8 TO 1.2MG/KG/DOSE QID FOR 4 DAYS ()
  3. CYCLOPHOSPHAMIDE [Suspect]
     Active Substance: CYCLOPHOSPHAMIDE
     Indication: Allogenic stem cell transplantation
     Dosage: 50 MG/KG/DAY FOR FOUR DAYS
  4. CYCLOSPORINE [Suspect]
     Active Substance: CYCLOSPORINE
     Indication: Prophylaxis against graft versus host disease
  5. METHOTREXATE [Suspect]
     Active Substance: METHOTREXATE
     Indication: Prophylaxis against graft versus host disease
     Dosage: SHORT-COURSE (+1, +3, +6) ()
  6. ACYCLOVIR [Concomitant]
     Active Substance: ACYCLOVIR
     Indication: Antiviral prophylaxis
  7. CIPROFLOXACIN [Concomitant]
     Active Substance: CIPROFLOXACIN
     Indication: Antibiotic prophylaxis
  8. METRONIDAZOLE [Concomitant]
     Active Substance: METRONIDAZOLE
     Indication: Antibiotic prophylaxis
  9. SULFAMETHOXAZOLE\TRIMETHOPRIM [Concomitant]
     Active Substance: SULFAMETHOXAZOLE\TRIMETHOPRIM
     Indication: Antibiotic prophylaxis
  10. FLUCONAZOLE [Concomitant]
     Active Substance: FLUCONAZOLE
     Indication: Antifungal prophylaxis

REACTIONS (3)
  - Graft versus host disease in skin [Unknown]
  - Graft versus host disease in gastrointestinal tract [Unknown]
  - Malassezia infection [Unknown]
